FAERS Safety Report 5375449-3 (Version None)
Quarter: 2007Q2

REPORT INFORMATION
  Report Type: 
  Country: None (occurrence: None)
  Receive Date: 20070629
  Receipt Date: 20070627
  Transmission Date: 20071010
  Serious: Yes (Hospitalization)
  Sender: FDA-Public Use
  Company Number: GB-BOEHRINGER INGELHEIM PHARMACEUTICALS, INC.-2007-UK-02107UK

PATIENT
  Age: 77 Year
  Sex: Male

DRUGS (4)
  1. COMBIVENT [Suspect]
     Indication: CHRONIC OBSTRUCTIVE PULMONARY DISEASE
     Route: 055
  2. SPIRIVA [Suspect]
     Route: 055
     Dates: start: 20070510, end: 20070527
  3. PREDNISOLONE [Concomitant]
  4. TAMSULOSIN HCL [Concomitant]

REACTIONS (2)
  - ATRIAL FIBRILLATION [None]
  - URINARY RETENTION [None]
